FAERS Safety Report 18201088 (Version 1)
Quarter: 2020Q3

REPORT INFORMATION
  Report Type: Spontaneous
  Country: JP (occurrence: JP)
  Receive Date: 20200826
  Receipt Date: 20200826
  Transmission Date: 20201103
  Serious: Yes (Hospitalization, Other)
  Sender: FDA-Public Use
  Company Number: JP-TAKEDA-2020TJP017327

PATIENT
  Sex: Female

DRUGS (2)
  1. ROZEREM [Suspect]
     Active Substance: RAMELTEON
     Indication: GENERALISED ANXIETY DISORDER
     Dosage: UNK UNK, QD
     Route: 065
  2. MEILAX [Concomitant]
     Active Substance: ETHYL LOFLAZEPATE
     Dosage: UNK UNK, QD
     Route: 065

REACTIONS (4)
  - Hospitalisation [Unknown]
  - Insomnia [Unknown]
  - Product prescribing error [Unknown]
  - Off label use [Unknown]
